FAERS Safety Report 15653421 (Version 1)
Quarter: 2018Q4

REPORT INFORMATION
  Report Type: Report from Study
  Country: JP (occurrence: JP)
  Receive Date: 20181124
  Receipt Date: 20181124
  Transmission Date: 20190205
  Serious: Yes (Other)
  Sender: FDA-Public Use
  Company Number: JP-ACCORD-092916

PATIENT
  Age: 50 Year
  Sex: Female

DRUGS (6)
  1. ISONIAZID/ISONIAZID CALCIUM PYRUVINATE/ISONIAZID SODIUM GLUCURONATE [Concomitant]
  2. LEVOFLOXACIN. [Concomitant]
     Active Substance: LEVOFLOXACIN
  3. PYRAZINAMIDE. [Concomitant]
     Active Substance: PYRAZINAMIDE
  4. RIFAMPICIN [Concomitant]
     Active Substance: RIFAMPIN
  5. TACROLIMUS. [Suspect]
     Active Substance: TACROLIMUS
     Indication: IMMUNOSUPPRESSANT DRUG THERAPY
  6. ETHAMBUTOL [Concomitant]
     Active Substance: ETHAMBUTOL HYDROCHLORIDE

REACTIONS (2)
  - Cardiomyopathy [Unknown]
  - Mycobacterial infection [Recovering/Resolving]
